FAERS Safety Report 5809892-2 (Version None)
Quarter: 2008Q3

REPORT INFORMATION
  Report Type: 
  Country: None (occurrence: None)
  Receive Date: 20080714
  Receipt Date: 20080714
  Transmission Date: 20090109
  Serious: Yes (Hospitalization)
  Sender: FDA-Public Use
  Company Number: None

PATIENT
  Sex: Male
  Weight: 65 kg

DRUGS (2)
  1. CARBOPLATIN [Suspect]
     Dosage: AUC 6 -485 MG-EVERY THREE WEEKS IV
     Route: 042
     Dates: start: 20080201
  2. BORTEZOMIB [Suspect]
     Dosage: 16 MG/M2-2.8 MG-DAY 1 + 8/21 DAYS IV BOLUS
     Route: 040
     Dates: start: 20080201

REACTIONS (6)
  - CLOSTRIDIAL INFECTION [None]
  - CULTURE STOOL POSITIVE [None]
  - DEHYDRATION [None]
  - DIARRHOEA [None]
  - DRUG TOXICITY [None]
  - NAUSEA [None]
